FAERS Safety Report 24385727 (Version 2)
Quarter: 2025Q2

REPORT INFORMATION
  Report Type: Report from Study
  Country: CA (occurrence: CA)
  Receive Date: 20241001
  Receipt Date: 20250424
  Transmission Date: 20250716
  Serious: No
  Sender: TAKEDA
  Company Number: CA-TAKEDA-2024TUS067134

PATIENT
  Sex: Female

DRUGS (5)
  1. VEDOLIZUMAB [Suspect]
     Active Substance: VEDOLIZUMAB
     Indication: Colitis ulcerative
  2. VEDOLIZUMAB [Suspect]
     Active Substance: VEDOLIZUMAB
  3. VEDOLIZUMAB [Suspect]
     Active Substance: VEDOLIZUMAB
  4. PREDNISONE [Concomitant]
     Active Substance: PREDNISONE
  5. STELARA [Concomitant]
     Active Substance: USTEKINUMAB

REACTIONS (2)
  - Poor venous access [Unknown]
  - Blood pressure increased [Unknown]
